FAERS Safety Report 6425406-0 (Version None)
Quarter: 2009Q4

REPORT INFORMATION
  Report Type: 
  Country: None (occurrence: None)
  Receive Date: 20091103
  Receipt Date: 20091026
  Transmission Date: 20100525
  Serious: No
  Sender: FDA-Public Use
  Company Number: US-B.I. PHARMACEUTICALS,INC./RIDGEFIELD-2009-BP-12453BP

PATIENT
  Age: 60 Year
  Sex: Female

DRUGS (5)
  1. CATAPRES-TTS-1 [Suspect]
     Indication: HYPERTENSION
     Dosage: 0.1 MG
     Route: 061
     Dates: start: 20081001
  2. FUROSEMIDE [Concomitant]
     Indication: HYPERTENSION
     Dates: start: 20090401
  3. WELLBUTRIN [Concomitant]
     Indication: DEPRESSION
     Dates: start: 19990101
  4. LORAZEPAM [Concomitant]
     Indication: ANXIETY
     Dates: start: 20070101
  5. ESTRADIOL [Concomitant]
     Indication: VULVOVAGINAL DRYNESS

REACTIONS (1)
  - APPLICATION SITE RASH [None]
